FAERS Safety Report 6099325-6 (Version None)
Quarter: 2009Q1

REPORT INFORMATION
  Report Type: 
  Country: None (occurrence: None)
  Receive Date: 20090226
  Receipt Date: 20090209
  Transmission Date: 20090719
  Serious: No
  Sender: FDA-Public Use
  Company Number: 2009-00003

PATIENT
  Sex: Female

DRUGS (1)
  1. AVEENO POSTIVELY RADIANT DAILY MOISTURIZER SPF 15 [Suspect]

REACTIONS (1)
  - LIMB INJURY [None]
